FAERS Safety Report 4310578-4 (Version None)
Quarter: 2004Q1

REPORT INFORMATION
  Report Type: 
  Country: None (occurrence: None)
  Receive Date: 20040301
  Receipt Date: 20031104
  Transmission Date: 20041129
  Serious: No
  Sender: FDA-Public Use
  Company Number: WAES 0311USA00307

PATIENT
  Age: 70 Year
  Sex: Male

DRUGS (2)
  1. ZETIA [Suspect]
     Dosage: SEE IMAGE
     Route: 048
  2. PRAVACHOL [Concomitant]

REACTIONS (2)
  - IRRITABLE BOWEL SYNDROME [None]
  - MEDICATION ERROR [None]
